FAERS Safety Report 4687407-2 (Version None)
Quarter: 2005Q2

REPORT INFORMATION
  Report Type: 
  Country: None (occurrence: None)
  Receive Date: 20050609
  Receipt Date: 20050609
  Transmission Date: 20051028
  Serious: Yes (Other)
  Sender: FDA-Public Use
  Company Number: None

PATIENT
  Sex: Male
  Weight: 94.1 kg

DRUGS (4)
  1. OXALIPLATIN [Suspect]
     Indication: COLON CANCER METASTATIC
     Dosage: 85MG/M2 INFUSED OVER 120MIN, DOSE REDUCED 1 DOSE LEVEL TO 65MG/M2 ON 1/18/05 FOR INFECTION
     Dates: start: 20041012
  2. LEUCOVORIN [Suspect]
     Dosage: 400 MG/M2 OVER 2HRS
     Dates: start: 20041012
  3. FLUOROURACIL [Suspect]
     Dosage: 400MG/M2 IV BOLUS INJECTION
  4. TYLENOL [Concomitant]

REACTIONS (10)
  - ABDOMINAL PAIN [None]
  - CATHETER RELATED COMPLICATION [None]
  - HEART RATE INCREASED [None]
  - LUNG DISORDER [None]
  - LUNG INFILTRATION [None]
  - LYME DISEASE [None]
  - PNEUMONIA [None]
  - POST PROCEDURAL VOMITING [None]
  - PYREXIA [None]
  - RESPIRATORY RATE INCREASED [None]
